FAERS Safety Report 6254652-4 (Version None)
Quarter: 2009Q3

REPORT INFORMATION
  Report Type: 
  Country: None (occurrence: None)
  Receive Date: 20090702
  Receipt Date: 20090624
  Transmission Date: 20100115
  Serious: Yes (Hospitalization)
  Sender: FDA-Public Use
  Company Number: B0580336A

PATIENT
  Sex: Female
  Weight: 61 kg

DRUGS (11)
  1. IMUREL [Suspect]
     Indication: DRUG USE FOR UNKNOWN INDICATION
     Dosage: 50MG VARIABLE DOSE
     Route: 048
     Dates: start: 20040101, end: 20090503
  2. MABTHERA [Suspect]
     Indication: DRUG USE FOR UNKNOWN INDICATION
     Dosage: 1G MONTHLY
     Route: 042
     Dates: start: 20080925, end: 20081017
  3. CORTANCYL [Suspect]
     Indication: DRUG USE FOR UNKNOWN INDICATION
     Dosage: 5MG PER DAY
     Route: 048
     Dates: start: 19900101
  4. AMOXICILLIN [Suspect]
     Dosage: 1G THREE TIMES PER DAY
     Route: 065
     Dates: start: 20090401, end: 20090401
  5. PNEUMO 23 [Concomitant]
     Route: 065
     Dates: start: 20081016, end: 20081016
  6. LEVOTHYROX [Concomitant]
     Indication: HYPOTHYROIDISM
     Dosage: 50MCG PER DAY
     Route: 065
  7. HUMIRA [Concomitant]
     Route: 065
     Dates: start: 20041201, end: 20070901
  8. ENBREL [Concomitant]
     Dosage: 25MG TWO TIMES PER WEEK
     Route: 065
     Dates: start: 20040121, end: 20040225
  9. SOLU-MEDROL [Concomitant]
     Route: 065
     Dates: start: 20080925, end: 20080925
  10. ELISOR [Concomitant]
     Dosage: 40MG PER DAY
     Route: 065
  11. KARDEGIC [Concomitant]
     Route: 065

REACTIONS (8)
  - AGRANULOCYTOSIS [None]
  - BONE MARROW FAILURE [None]
  - COUGH [None]
  - INFLAMMATION [None]
  - LYMPHOPENIA [None]
  - PNEUMONIA PNEUMOCOCCAL [None]
  - PYREXIA [None]
  - SPUTUM PURULENT [None]
